FAERS Safety Report 12875772 (Version 2)
Quarter: 2016Q4

REPORT INFORMATION
  Report Type: Report from Study
  Country: DE (occurrence: DE)
  Receive Date: 20161024
  Receipt Date: 20161026
  Transmission Date: 20170207
  Serious: Yes (Hospitalization)
  Sender: FDA-Public Use
  Company Number: DE-TEVA-704389GER

PATIENT
  Age: 36 Year
  Sex: Female
  Weight: 73 kg

DRUGS (4)
  1. EMEND [Concomitant]
     Active Substance: APREPITANT
     Dosage: 80 MILLIGRAM DAILY;
     Dates: start: 20160604, end: 20161014
  2. PACLITAXEL. [Suspect]
     Active Substance: PACLITAXEL
     Indication: BREAST CANCER FEMALE
     Dosage: LAST DOSE PRIOR TO SAE: 12-OCT-2016
     Route: 042
     Dates: start: 20160603
  3. MYOCET [Suspect]
     Active Substance: DOXORUBICIN
     Indication: BREAST CANCER FEMALE
     Dosage: LAST DOSE PRIOR TO SAE: 12-OCT-2016
     Route: 042
     Dates: start: 20160603
  4. CARBOPLATIN. [Suspect]
     Active Substance: CARBOPLATIN
     Indication: BREAST CANCER FEMALE
     Dosage: LAST DOSE PRIOR TO SAE: 12-OCT-2016
     Route: 042
     Dates: start: 20160603

REACTIONS (1)
  - Pyrexia [Recovered/Resolved]

NARRATIVE: CASE EVENT DATE: 20161014
